APPROVED DRUG PRODUCT: LENALIDOMIDE
Active Ingredient: LENALIDOMIDE
Strength: 10MG
Dosage Form/Route: CAPSULE;ORAL
Application: A213885 | Product #003 | TE Code: AB
Applicant: EUGIA PHARMA SPECIALITIES LTD
Approved: Mar 6, 2023 | RLD: No | RS: No | Type: RX